FAERS Safety Report 5949361-2 (Version None)
Quarter: 2008Q4

REPORT INFORMATION
  Report Type: 
  Country: None (occurrence: None)
  Receive Date: 20081021
  Receipt Date: 20080626
  Transmission Date: 20090506
  Serious: Yes (Other)
  Sender: FDA-Public Use
  Company Number: HQWYE339502AUG07

PATIENT
  Age: 54 Year
  Sex: Female
  Weight: 90.8 kg

DRUGS (2)
  1. PREMARIN [Suspect]
     Indication: OESTROGEN REPLACEMENT THERAPY
     Dosage: 0.625 MG 1X PER 1 DAY, ORAL
     Route: 048
     Dates: start: 19750101, end: 19950101
  2. VALIUM [Concomitant]

REACTIONS (1)
  - BREAST CANCER [None]
